FAERS Safety Report 5125037-9 (Version None)
Quarter: 2006Q4

REPORT INFORMATION
  Report Type: 
  Country: None (occurrence: None)
  Receive Date: 20061011
  Receipt Date: 20061002
  Transmission Date: 20070319
  Serious: Yes (Other)
  Sender: FDA-Public Use
  Company Number: GB-MERCK-0610GBR00017

PATIENT
  Age: 60 Year
  Sex: Male

DRUGS (4)
  1. INDOCIN [Suspect]
     Indication: GOUT
     Route: 065
     Dates: start: 20060801
  2. ASPIRIN [Concomitant]
     Route: 065
  3. LISINOPRIL [Concomitant]
     Indication: HYPERTENSION
     Route: 065
  4. SIMVASTATIN [Concomitant]
     Indication: BLOOD CHOLESTEROL INCREASED
     Route: 065

REACTIONS (2)
  - POLLAKIURIA [None]
  - URINE COLOUR ABNORMAL [None]
